FAERS Safety Report 19822754 (Version 2)
Quarter: 2021Q3

REPORT INFORMATION
  Report Type: Spontaneous
  Country: US (occurrence: GB)
  Receive Date: 20210913
  Receipt Date: 20210927
  Transmission Date: 20211014
  Serious: Yes (Other)
  Sender: FDA-Public Use
  Company Number: US-BAYER-2021-209452

PATIENT
  Age: 73 Year
  Sex: Male

DRUGS (3)
  1. CIMETIDINE [Concomitant]
     Active Substance: CIMETIDINE
     Indication: PEPTIC ULCER
     Dosage: 400 MG, BID
  2. PREDNISOLONE. [Concomitant]
     Active Substance: PREDNISOLONE
     Dosage: 5 MG, QD
  3. CIPROFLOXACIN. [Suspect]
     Active Substance: CIPROFLOXACIN
     Indication: OSTEOMYELITIS CHRONIC
     Dosage: 250 MG, BID
     Route: 048
     Dates: start: 198910

REACTIONS (1)
  - Myasthenia gravis [Recovered/Resolved]
